FAERS Safety Report 7228454-6 (Version None)
Quarter: 2011Q1

REPORT INFORMATION
  Report Type: 
  Country: None (occurrence: None)
  Receive Date: 20110114
  Receipt Date: 20110111
  Transmission Date: 20110831
  Serious: Yes (Congenital Anomaly)
  Sender: FDA-Public Use
  Company Number: US-GILEAD-2011-0035116

PATIENT
  Sex: Male

DRUGS (2)
  1. VIREAD [Suspect]
     Indication: HIV INFECTION
  2. TRIZIVIR [Concomitant]
     Indication: HIV INFECTION

REACTIONS (1)
  - CONGENITAL PULMONARY VALVE ATRESIA [None]
